FAERS Safety Report 11618388 (Version 1)
Quarter: 2015Q4

REPORT INFORMATION
  Report Type: Spontaneous
  Country: US (occurrence: US)
  Receive Date: 20151012
  Receipt Date: 20151012
  Transmission Date: 20160304
  Serious: No
  Sender: FDA-Public Use
  Company Number: US-ASTRAZENECA-2015SE95596

PATIENT
  Sex: Male
  Weight: 95.3 kg

DRUGS (2)
  1. LIPTIOR [Concomitant]
     Indication: BLOOD CHOLESTEROL ABNORMAL
  2. FARXIGA [Suspect]
     Active Substance: DAPAGLIFLOZIN PROPANEDIOL
     Indication: TYPE 2 DIABETES MELLITUS
     Route: 048

REACTIONS (3)
  - Weight decreased [Unknown]
  - Nausea [Unknown]
  - Vomiting [Unknown]
